FAERS Safety Report 14600340 (Version 1)
Quarter: 2018Q1

REPORT INFORMATION
  Report Type: Spontaneous
  Country: JP (occurrence: JP)
  Receive Date: 20180305
  Receipt Date: 20180305
  Transmission Date: 20180509
  Serious: Yes (Life-Threatening)
  Sender: FDA-Public Use
  Company Number: JP-BEH-2018088480

PATIENT
  Age: 24 Year
  Sex: Female

DRUGS (5)
  1. SANGLOPOR [Suspect]
     Active Substance: HUMAN IMMUNOGLOBULIN G
     Indication: INFECTION
     Dosage: 2.5 G, UNK
     Route: 042
     Dates: start: 20180209, end: 20180209
  2. BFLUID [Concomitant]
     Active Substance: AMINO ACIDS\DEXTROSE\ELECTROLYTES NOS\VITAMINS
     Route: 065
  3. DEXART [Concomitant]
     Active Substance: DEXAMETHASONE SODIUM PHOSPHATE
     Dosage: 6.6 MG, UNK
     Route: 065
  4. MEROPENEM. [Concomitant]
     Active Substance: MEROPENEM
     Route: 065
  5. ACMAIN [Concomitant]
     Route: 065

REACTIONS (4)
  - Dyspnoea [Recovered/Resolved]
  - Hot flush [Recovered/Resolved]
  - Anaphylactic reaction [Recovered/Resolved]
  - Cough [Recovered/Resolved]

NARRATIVE: CASE EVENT DATE: 20180209
